FAERS Safety Report 4329993-8 (Version None)
Quarter: 2004Q1

REPORT INFORMATION
  Report Type: 
  Country: None (occurrence: None)
  Receive Date: 20040329
  Receipt Date: 20040317
  Transmission Date: 20041129
  Serious: Yes (Death, Hospitalization)
  Sender: FDA-Public Use
  Company Number: 03P-028-0214359-00

PATIENT
  Age: 38 Year
  Sex: Male

DRUGS (7)
  1. KALETRA [Suspect]
     Indication: HIV INFECTION
     Dosage: 3 TABLET, 2 IN 1 D
     Dates: start: 20010413
  2. NEVIRAPINE [Concomitant]
  3. STAVUDINE [Concomitant]
  4. LAMIVUDINE [Concomitant]
  5. LAMIVUDINE [Concomitant]
  6. FILGRASTIM [Concomitant]
  7. CAELIX [Concomitant]

REACTIONS (8)
  - KAPOSI'S SARCOMA [None]
  - LOCAL SWELLING [None]
  - LYMPHATIC OBSTRUCTION [None]
  - OEDEMA PERIPHERAL [None]
  - PYREXIA [None]
  - SCROTAL SWELLING [None]
  - SKIN ULCER [None]
  - SOMNOLENCE [None]
